FAERS Safety Report 9378111 (Version 1)
Quarter: 2013Q3

REPORT INFORMATION
  Report Type: Spontaneous
  Country: US (occurrence: US)
  Receive Date: 20130701
  Receipt Date: 20130701
  Transmission Date: 20140515
  Serious: Yes (Life-Threatening, Hospitalization, Other)
  Sender: FDA-Public Use
  Company Number: US-ABBOTT-12R-163-0910697-00

PATIENT
  Age: 1 Hour
  Sex: 0
  Weight: 1 kg

DRUGS (1)
  1. SURVANTA [Suspect]
     Indication: NEONATAL RESPIRATORY DISTRESS SYNDROME
     Dosage: INTRATRACHEAL INSTILLATION
     Route: 050

REACTIONS (1)
  - Carbon dioxide increased [Recovering/Resolving]
